FAERS Safety Report 8332886-2 (Version None)
Quarter: 2012Q1

REPORT INFORMATION
  Report Type: 
  Country: None (occurrence: None)
  Receive Date: 20120327
  Receipt Date: 20100610
  Transmission Date: 20120608
  Serious: Yes (Other)
  Sender: FDA-Public Use
  Company Number: PHHY2010US10746

PATIENT
  Age: 60 Year
  Sex: Female
  Weight: 71.7 kg

DRUGS (1)
  1. GLEEVEC [Suspect]
     Indication: CHRONIC MYELOID LEUKAEMIA
     Dosage: 400 MG, BID, ORAL
     Route: 048
     Dates: start: 20091101, end: 20100301

REACTIONS (6)
  - SWELLING [None]
  - RASH [None]
  - FATIGUE [None]
  - OEDEMA [None]
  - SKIN BURNING SENSATION [None]
  - BLISTER [None]
